FAERS Safety Report 26082775 (Version 1)
Quarter: 2025Q4

REPORT INFORMATION
  Report Type: Spontaneous
  Country: US (occurrence: US)
  Receive Date: 20251124
  Receipt Date: 20251124
  Transmission Date: 20260118
  Serious: No
  Sender: BOEHRINGER INGELHEIM
  Company Number: US-Komodo Health-a23aa00000CC0gTAAT

PATIENT
  Sex: Female

DRUGS (1)
  1. CYLTEZO [Suspect]
     Active Substance: ADALIMUMAB-ADBM
     Indication: Product used for unknown indication

REACTIONS (1)
  - Incorrect route of product administration [Unknown]
